FAERS Safety Report 6450606-3 (Version None)
Quarter: 2009Q4

REPORT INFORMATION
  Report Type: 
  Country: None (occurrence: None)
  Receive Date: 20091123
  Receipt Date: 20091111
  Transmission Date: 20100525
  Serious: Yes (Other)
  Sender: FDA-Public Use
  Company Number: US-BAYER-200939251NA

PATIENT
  Sex: Female

DRUGS (1)
  1. YAZ [Suspect]
     Indication: DRUG USE FOR UNKNOWN INDICATION
     Route: 048
     Dates: start: 20080201, end: 20090301

REACTIONS (6)
  - CONVULSION [None]
  - HEAD INJURY [None]
  - HYPERTENSION [None]
  - STATUS EPILEPTICUS [None]
  - SYNCOPE [None]
  - THROMBOSIS [None]
